FAERS Safety Report 11162174 (Version 1)
Quarter: 2015Q2

REPORT INFORMATION
  Report Type: Spontaneous
  Country: US (occurrence: US)
  Receive Date: 20150604
  Receipt Date: 20150604
  Transmission Date: 20150821
  Serious: No
  Sender: FDA-Public Use
  Company Number: US-SA-2014SA127362

PATIENT
  Age: 10 Year
  Sex: Male

DRUGS (2)
  1. SOLOSTAR [Concomitant]
     Active Substance: DEVICE
  2. LANTUS SOLOSTAR [Suspect]
     Active Substance: INSULIN GLARGINE
     Indication: TYPE 1 DIABETES MELLITUS
     Dosage: DOSE:12.5 UNIT(S)
     Route: 065
     Dates: start: 201111

REACTIONS (5)
  - Malaise [Unknown]
  - Blood glucose increased [Unknown]
  - Product quality issue [Unknown]
  - Blood ketone body increased [Unknown]
  - Underdose [Unknown]
